FAERS Safety Report 9191657 (Version 1)
Quarter: 2013Q1

REPORT INFORMATION
  Report Type: Spontaneous
  Country: US (occurrence: US)
  Receive Date: 20130326
  Receipt Date: 20130326
  Transmission Date: 20140127
  Serious: Yes (Disabling, Other)
  Sender: FDA-Public Use
  Company Number: GXBR2013US000800

PATIENT
  Sex: Female
  Weight: 56.24 kg

DRUGS (10)
  1. ENOXAPARIN SODIUM [Suspect]
     Indication: ANTICOAGULANT THERAPY
     Dosage: 40 MG, BID
     Route: 058
     Dates: start: 201202, end: 201202
  2. RYTHMOL//PROPAFENONE [Concomitant]
     Indication: ATRIAL FIBRILLATION
     Dosage: UNK MG, UNK
     Route: 048
  3. DIGOXIN [Concomitant]
     Indication: CARDIAC DISORDER
     Dosage: 0.125 MG, QD
     Route: 048
  4. PREDNISONE [Concomitant]
     Indication: ADRENALECTOMY
     Dosage: 5 MG, UNK
     Route: 048
  5. BACLOFEN [Concomitant]
     Indication: MUSCLE SPASMS
     Dosage: UNK MG, BID
     Route: 048
  6. HYDRALAZINE [Concomitant]
     Indication: HYPERTENSION
     Dosage: 50 MG, BID
     Route: 048
  7. VITAMIN D [Concomitant]
     Dosage: 400 MG, UNK
  8. HERBAL PREPARATION [Concomitant]
     Dosage: 400 MG, UNK
     Route: 048
  9. MAGNESIUM [Concomitant]
     Dosage: UNK DF, BID
     Route: 048
  10. ALPRAZOLAM [Concomitant]
     Indication: ANXIETY
     Dosage: 0.75 QAM, 0.5MG QPM, 0.75 QHS
     Route: 048

REACTIONS (5)
  - Dizziness [Not Recovered/Not Resolved]
  - Pelvic fracture [Recovered/Resolved]
  - Fall [Recovered/Resolved]
  - Swelling face [Recovered/Resolved]
  - Oedema peripheral [Recovered/Resolved]
